FAERS Safety Report 4987253-6 (Version None)
Quarter: 2006Q2

REPORT INFORMATION
  Report Type: 
  Country: None (occurrence: None)
  Receive Date: 20060501
  Receipt Date: 20051003
  Transmission Date: 20061013
  Serious: Yes (Hospitalization, Other)
  Sender: FDA-Public Use
  Company Number: US-MERCK-0602USA05265

PATIENT
  Age: 79 Year
  Sex: Female
  Weight: 86 kg

DRUGS (10)
  1. VIOXX [Suspect]
     Indication: SCIATICA
     Route: 048
     Dates: start: 20010101, end: 20031201
  2. VIOXX [Suspect]
     Indication: ARTHRALGIA
     Route: 048
     Dates: start: 20010101, end: 20031201
  3. ATENOLOL [Concomitant]
     Route: 048
  4. ACIPHEX [Concomitant]
     Indication: GASTROOESOPHAGEAL REFLUX DISEASE
     Route: 065
  5. ACIPHEX [Concomitant]
     Indication: IRRITABLE BOWEL SYNDROME
     Route: 065
  6. FLONASE [Concomitant]
     Indication: SINUS DISORDER
     Route: 055
  7. LIPITOR [Concomitant]
     Route: 048
  8. CELEXA [Concomitant]
     Indication: DEPRESSION
     Route: 065
  9. REMINYL [Concomitant]
     Indication: DEMENTIA
     Route: 048
  10. IMODIUM [Concomitant]
     Indication: IRRITABLE BOWEL SYNDROME
     Route: 065

REACTIONS (44)
  - AMNESIA [None]
  - ANAEMIA [None]
  - ARTERIOSCLEROSIS [None]
  - ARTHRALGIA [None]
  - ARTHRITIS [None]
  - BRADYCARDIA [None]
  - BREAST DISORDER [None]
  - BRONCHITIS [None]
  - BUNION [None]
  - CARDIOMEGALY [None]
  - CEREBROVASCULAR ACCIDENT [None]
  - CONFUSIONAL STATE [None]
  - COUGH [None]
  - DELIRIUM [None]
  - DEMENTIA [None]
  - DEPRESSION [None]
  - DYSPNOEA [None]
  - DYSURIA [None]
  - FATIGUE [None]
  - GASTROINTESTINAL HAEMORRHAGE [None]
  - GASTROOESOPHAGEAL REFLUX DISEASE [None]
  - HAEMATURIA [None]
  - HEAT STROKE [None]
  - HYPERGLYCAEMIA [None]
  - HYPERLIPIDAEMIA [None]
  - HYPERTENSION [None]
  - HYPOKALAEMIA [None]
  - HYPOTHYROIDISM [None]
  - JOINT DISLOCATION [None]
  - MENTAL STATUS CHANGES [None]
  - MITRAL VALVE INCOMPETENCE [None]
  - ONYCHOMYCOSIS [None]
  - PITTING OEDEMA [None]
  - PLEURAL EFFUSION [None]
  - PNEUMONIA [None]
  - PNEUMONITIS [None]
  - PULMONARY HYPERTENSION [None]
  - PYREXIA [None]
  - SINUSITIS [None]
  - SOMNOLENCE [None]
  - TRANSIENT ISCHAEMIC ATTACK [None]
  - URINARY INCONTINENCE [None]
  - URINARY TRACT INFECTION [None]
  - VENTRICULAR HYPERTROPHY [None]
